FAERS Safety Report 14985416 (Version 1)
Quarter: 2018Q2

REPORT INFORMATION
  Report Type: Spontaneous
  Country: US (occurrence: US)
  Receive Date: 20180516
  Receipt Date: 20180516
  Transmission Date: 20180711
  Serious: No
  Sender: FDA-Public Use
  Company Number: None

PATIENT
  Age: 67 Year
  Sex: Female

DRUGS (1)
  1. HUMIRA [Suspect]
     Active Substance: ADALIMUMAB
     Route: 058
     Dates: start: 20180208

REACTIONS (6)
  - Lip dry [None]
  - Chapped lips [None]
  - Lip haemorrhage [None]
  - Cheilitis [None]
  - Dry mouth [None]
  - Tooth disorder [None]
